FAERS Safety Report 24771280 (Version 1)
Quarter: 2024Q4

REPORT INFORMATION
  Report Type: Report from Study
  Country: GB (occurrence: None)
  Receive Date: 20241224
  Receipt Date: 20241224
  Transmission Date: 20250114
  Serious: Yes (Other)
  Sender: MDD OPERATIONS
  Company Number: GB-MDD US Operations-MDD202412-004805

PATIENT
  Age: 58 Year
  Sex: Male

DRUGS (10)
  1. APOMORPHINE HYDROCHLORIDE [Suspect]
     Active Substance: APOMORPHINE HYDROCHLORIDE
     Indication: Parkinson^s disease
     Route: 058
     Dates: start: 20230210
  2. APOMORPHINE HYDROCHLORIDE [Suspect]
     Active Substance: APOMORPHINE HYDROCHLORIDE
     Route: 058
     Dates: start: 20241031, end: 20241210
  3. STALEVO [Concomitant]
     Active Substance: CARBIDOPA\ENTACAPONE\LEVODOPA
     Indication: Parkinson^s disease
     Dosage: NOT PROVIDED
  4. Ippinia [Concomitant]
     Indication: Parkinson^s disease
     Dosage: NOT PROVIDED
  5. CARBIDOPA\LEVODOPA [Concomitant]
     Active Substance: CARBIDOPA\LEVODOPA
     Indication: Parkinson^s disease
     Dosage: NOT PROVIDED
  6. BENSERAZIDE HYDROCHLORIDE\LEVODOPA [Concomitant]
     Active Substance: BENSERAZIDE HYDROCHLORIDE\LEVODOPA
     Indication: Parkinson^s disease
     Dosage: NOT PROVIDED
  7. MELATONIN [Concomitant]
     Active Substance: MELATONIN
     Dosage: NOT PROVIDED
  8. ZOPICLONE [Concomitant]
     Active Substance: ZOPICLONE
     Dosage: NOT PROVIDED
  9. CETIRIZINE [Concomitant]
     Active Substance: CETIRIZINE HYDROCHLORIDE
     Dosage: NOT PROVIDED
  10. VITAMIN B12 [Concomitant]
     Active Substance: CYANOCOBALAMIN
     Dosage: NOT PROVIDED

REACTIONS (2)
  - Skin necrosis [Unknown]
  - Infusion site nodule [Unknown]
